FAERS Safety Report 16825429 (Version 1)
Quarter: 2019Q3

REPORT INFORMATION
  Report Type: Other
  Country: US (occurrence: US)
  Receive Date: 20190919
  Receipt Date: 20190919
  Transmission Date: 20191005
  Serious: Yes (Life-Threatening, Hospitalization)
  Sender: FDA-Public Use
  Company Number: US-INNOGENIX, LLC-2074644

PATIENT
  Age: 37 Year
  Sex: Male

DRUGS (2)
  1. PROPRANOLOL HYDROCHLORIDE. [Suspect]
     Active Substance: PROPRANOLOL HYDROCHLORIDE
     Indication: PRODUCT USED FOR UNKNOWN INDICATION
     Route: 065
  2. QUETIAPINE. [Suspect]
     Active Substance: QUETIAPINE
     Route: 065

REACTIONS (3)
  - Cardiogenic shock [Recovering/Resolving]
  - Intentional overdose [Unknown]
  - Hypoglycaemia [Recovered/Resolved]
